FAERS Safety Report 5454077-5 (Version None)
Quarter: 2007Q3

REPORT INFORMATION
  Report Type: 
  Country: None (occurrence: None)
  Receive Date: 20070917
  Receipt Date: 20070709
  Transmission Date: 20080115
  Serious: Yes (Other)
  Sender: FDA-Public Use
  Company Number: US-ASTRAZENECA-2006UW09051

PATIENT
  Age: 50 Year
  Sex: Female

DRUGS (3)
  1. SEROQUEL [Suspect]
     Indication: DEPRESSION
     Route: 048
     Dates: start: 20050101
  2. RISPERDAL [Suspect]
     Dosage: 0.25 TO 1 MG TABLET
     Dates: start: 20030801, end: 20040201
  3. ZYPREXA [Suspect]
     Dates: start: 20021101, end: 20030401

REACTIONS (2)
  - DIABETES MELLITUS [None]
  - PANCREATITIS [None]
